FAERS Safety Report 6317994-X (Version None)
Quarter: 2009Q3

REPORT INFORMATION
  Report Type: 
  Country: None (occurrence: None)
  Receive Date: 20090821
  Receipt Date: 20090810
  Transmission Date: 20100115
  Serious: Yes (Other)
  Sender: FDA-Public Use
  Company Number: JP-PFIZER INC-2009254398

PATIENT
  Age: 60 Year

DRUGS (2)
  1. RIFABUTIN [Suspect]
     Indication: MYCOBACTERIAL INFECTION
     Dosage: UNK
     Route: 048
     Dates: start: 20090506, end: 20090714
  2. ESANBUTOL [Concomitant]
     Dosage: UNK
     Route: 048

REACTIONS (2)
  - EYE PAIN [None]
  - VISUAL IMPAIRMENT [None]
